FAERS Safety Report 5215194-8 (Version None)
Quarter: 2007Q1

REPORT INFORMATION
  Report Type: 
  Country: None (occurrence: None)
  Receive Date: 20070122
  Receipt Date: 20070110
  Transmission Date: 20070707
  Serious: Yes (Other)
  Sender: FDA-Public Use
  Company Number: GB-PFIZER INC-2007004200

PATIENT
  Age: 79 Year
  Sex: Male

DRUGS (3)
  1. XALATAN [Suspect]
     Indication: GLAUCOMA
     Dosage: FREQ:DAILY
     Route: 061
  2. BECLOMETHASONE DIPROPIONATE [Concomitant]
  3. VENTOLIN [Concomitant]

REACTIONS (1)
  - RETINAL VEIN OCCLUSION [None]
